FAERS Safety Report 9607338 (Version 3)
Quarter: 2013Q4

REPORT INFORMATION
  Report Type: Report from Study
  Country: NO (occurrence: NO)
  Receive Date: 20131009
  Receipt Date: 20131022
  Transmission Date: 20140711
  Serious: Yes (Hospitalization, Other)
  Sender: FDA-Public Use
  Company Number: NO-TEVA-379317USA

PATIENT
  Age: 55 Year
  Sex: Male
  Weight: 91 kg

DRUGS (10)
  1. BENDAMUSTINE [Suspect]
     Indication: NON-HODGKIN^S LYMPHOMA
     Dosage: EVERY FOUR WEEKS
     Route: 042
     Dates: start: 20120829, end: 20130103
  2. BENDAMUSTINE [Suspect]
     Dosage: EVERY FOUR WEEKS
     Route: 042
     Dates: start: 20121121, end: 20130103
  3. RITUXIMAB [Suspect]
     Indication: NON-HODGKIN^S LYMPHOMA
     Route: 042
     Dates: start: 20120829
  4. RITUXIMAB [Suspect]
     Route: 058
     Dates: start: 20120926
  5. RITUXIMAB [Suspect]
     Route: 058
     Dates: start: 20121024
  6. RITUXIMAB [Suspect]
     Route: 058
     Dates: start: 20121121
  7. RITUXIMAB [Suspect]
     Route: 058
     Dates: start: 20130103
  8. CIPROFLOXACIN [Suspect]
     Indication: BRONCHITIS
     Dosage: 1000 MILLIGRAM DAILY;
     Dates: start: 20121219, end: 20121228
  9. AMOXICILLIN [Concomitant]
     Indication: BRONCHITIS
     Dates: start: 20121025, end: 20121103
  10. DOXYCLIN [Concomitant]
     Indication: BRONCHITIS
     Dates: start: 20121121, end: 20121129

REACTIONS (1)
  - Febrile neutropenia [Recovered/Resolved]
